FAERS Safety Report 16694871 (Version 2)
Quarter: 2019Q3

REPORT INFORMATION
  Report Type: Spontaneous
  Country: US (occurrence: US)
  Receive Date: 20190812
  Receipt Date: 20190819
  Transmission Date: 20191004
  Serious: No
  Sender: FDA-Public Use
  Company Number: PHEH2019US033042

PATIENT
  Sex: Female

DRUGS (2)
  1. PIQRAY [Suspect]
     Active Substance: ALPELISIB
     Indication: RASH
     Dosage: 300 MG, QD
     Route: 048
     Dates: start: 201907
  2. PIQRAY [Suspect]
     Active Substance: ALPELISIB
     Indication: STOMATITIS

REACTIONS (3)
  - Stomatitis [Recovering/Resolving]
  - Rash [Recovering/Resolving]
  - Product use in unapproved indication [Unknown]
